FAERS Safety Report 13336050 (Version 1)
Quarter: 2017Q1

REPORT INFORMATION
  Report Type: Spontaneous
  Country: US (occurrence: US)
  Receive Date: 20170315
  Receipt Date: 20170315
  Transmission Date: 20170428
  Serious: No
  Sender: FDA-Public Use
  Company Number: US-TEVA-728269ACC

PATIENT
  Sex: Female
  Weight: 52.21 kg

DRUGS (2)
  1. ACTICLATE [Concomitant]
     Active Substance: DOXYCYCLINE HYCLATE
     Indication: ACNE
     Dates: start: 20160315, end: 20161217
  2. CLINDAMYCIN W/TRETINOIN [Suspect]
     Active Substance: CLINDAMYCIN PHOSPHATE\TRETINOIN
     Indication: ACNE
     Dosage: 1X NIGHTTIME DAILY
     Dates: start: 20161209, end: 20161212

REACTIONS (4)
  - Pruritus [Recovered/Resolved]
  - Product physical issue [Unknown]
  - Dermal cyst [Recovered/Resolved]
  - Skin irritation [Recovered/Resolved]

NARRATIVE: CASE EVENT DATE: 2016
